FAERS Safety Report 23648626 (Version 1)
Quarter: 2024Q1

REPORT INFORMATION
  Report Type: Other
  Country: CN (occurrence: CN)
  Receive Date: 20240319
  Receipt Date: 20240319
  Transmission Date: 20240410
  Serious: Yes (Life-Threatening)
  Sender: FDA-Public Use
  Company Number: CN-ASTELLAS-2024US008460

PATIENT
  Age: 54 Year
  Sex: Female

DRUGS (1)
  1. ISAVUCONAZOLE [Suspect]
     Active Substance: ISAVUCONAZOLE
     Indication: Pneumonia fungal
     Route: 042
     Dates: start: 20240301, end: 20240301

REACTIONS (6)
  - Tachypnoea [Recovering/Resolving]
  - Oxygen saturation decreased [Unknown]
  - Chest discomfort [Recovering/Resolving]
  - Tachycardia [Unknown]
  - Dyspnoea [Unknown]
  - Off label use [Unknown]

NARRATIVE: CASE EVENT DATE: 20240301
